FAERS Safety Report 4660759-5 (Version None)
Quarter: 2005Q2

REPORT INFORMATION
  Report Type: 
  Country: None (occurrence: None)
  Receive Date: 20050427
  Receipt Date: 20040309
  Transmission Date: 20051028
  Serious: Yes (Other)
  Sender: FDA-Public Use
  Company Number: US-JNJFOC-20031003154

PATIENT
  Age: 73 Year
  Sex: Male
  Weight: 95.709 kg

DRUGS (2)
  1. ULTRAM [Suspect]
     Indication: BACK PAIN
     Dosage: 50 MG, 2 IN 2 DAY
     Dates: start: 20010101
  2. ELAVIL [Suspect]
     Indication: DEPRESSION
     Dosage: 100 MG, 1 IN 1 DAY
     Dates: start: 20031009

REACTIONS (2)
  - CONVULSION [None]
  - OVERDOSE [None]
